FAERS Safety Report 7407391-8 (Version None)
Quarter: 2011Q2

REPORT INFORMATION
  Report Type: 
  Country: None (occurrence: None)
  Receive Date: 20110411
  Receipt Date: 20110404
  Transmission Date: 20111010
  Serious: Yes (Disabling, Other)
  Sender: FDA-Public Use
  Company Number: US-MERCK-1104USA00291

PATIENT
  Age: 69 Year
  Sex: Male
  Weight: 107 kg

DRUGS (39)
  1. ZOCOR [Suspect]
     Route: 048
  2. METFFORMIN HYDROCHLORIDE [Suspect]
     Indication: DIABETES MELLITUS
     Route: 065
     Dates: start: 20101018
  3. TRAMADOL HYDROCHLORIDE [Suspect]
     Route: 065
  4. PROSCAR [Suspect]
     Route: 048
  5. REGLAN [Suspect]
     Route: 065
  6. PROZAC [Suspect]
     Route: 065
  7. METOPROLOL TARTRATE [Concomitant]
     Route: 065
  8. DIAZEPAM [Concomitant]
     Route: 065
  9. BILBERRY [Concomitant]
     Route: 065
  10. OMEGA-3 MARINE TRIGLYCERIDES [Concomitant]
     Route: 065
  11. ZETIA [Suspect]
     Route: 048
  12. COREG [Suspect]
     Indication: CARDIAC DISORDER
     Route: 065
  13. PRAVASTATIN SODIUM [Concomitant]
     Route: 065
  14. LUMIGAN [Concomitant]
     Indication: ABNORMAL SENSATION IN EYE
     Route: 065
  15. VICODIN [Concomitant]
     Route: 065
  16. LUVOX [Suspect]
     Route: 065
  17. ASPIRIN [Concomitant]
     Indication: CARDIAC DISORDER
     Route: 065
  18. LOSARTAN POTASSIUM [Concomitant]
     Indication: CARDIAC DISORDER
     Route: 065
  19. ALLOPURINOL [Concomitant]
     Route: 065
  20. LANTUS [Concomitant]
     Indication: DIABETES MELLITUS
     Route: 065
  21. POTASSIUM CHLORIDE [Concomitant]
     Route: 065
  22. CLOZAPINE [Concomitant]
     Dosage: 200 TO 300 MG
     Route: 065
  23. TOPROL-XL [Suspect]
     Route: 065
  24. PILOCARPINE [Concomitant]
     Indication: ABNORMAL SENSATION IN EYE
     Route: 065
  25. ADVIL LIQUI-GELS [Suspect]
     Indication: BACK PAIN
     Route: 065
     Dates: start: 20110301, end: 20110301
  26. ALPRAZOLAM [Suspect]
     Route: 065
  27. LOTRIMIN [Suspect]
     Route: 065
  28. CYCLOSPORINE [Suspect]
     Route: 065
  29. OXYCODONE [Concomitant]
     Indication: BACK PAIN
     Route: 065
  30. LIPITOR [Suspect]
     Route: 065
  31. XALATAN [Suspect]
     Route: 065
  32. PLAVIX [Suspect]
     Route: 065
  33. THERA TEARS [Concomitant]
     Route: 065
  34. ADVIL LIQUI-GELS [Suspect]
     Route: 065
     Dates: end: 20100101
  35. DIGOXIN [Concomitant]
     Route: 065
  36. FUROSEMIDE [Concomitant]
     Route: 065
  37. FOLIC ACID [Concomitant]
     Route: 065
  38. GLYBURIDE [Suspect]
     Indication: DIABETES MELLITUS
     Route: 065
  39. ISTALOL [Concomitant]
     Indication: ABNORMAL SENSATION IN EYE
     Route: 065

REACTIONS (10)
  - ABASIA [None]
  - ASTHENIA [None]
  - NAUSEA [None]
  - DYSPNOEA [None]
  - ARTHROPATHY [None]
  - BACK PAIN [None]
  - CHEST DISCOMFORT [None]
  - VOMITING [None]
  - SLEEP DISORDER [None]
  - MYALGIA [None]
